FAERS Safety Report 14918777 (Version 15)
Quarter: 2021Q2

REPORT INFORMATION
  Report Type: Spontaneous
  Country: US (occurrence: US)
  Receive Date: 20180521
  Receipt Date: 20210604
  Transmission Date: 20210716
  Serious: Yes (Other)
  Sender: FDA-Public Use
  Company Number: US-PFIZER INC-2018205301

PATIENT
  Age: 66 Year
  Sex: Female
  Weight: 103 kg

DRUGS (24)
  1. IBRANCE [Suspect]
     Active Substance: PALBOCICLIB
     Indication: BREAST CANCER STAGE IV
     Dosage: 75 MG, 1X/DAY
     Route: 048
     Dates: start: 201805
  2. VIT D [Concomitant]
     Active Substance: VITAMIN D NOS
     Dosage: UNK
  3. CANNABIS SATIVA OIL [Concomitant]
     Active Substance: CANNABIS SATIVA SUBSP. INDICA TOP
     Dosage: UNK
  4. DIINDOLYLMETHANE [Concomitant]
     Active Substance: 3,3^-DIINDOLYLMETHANE
     Dosage: UNK
  5. VITAMIN K2 + D3 [Concomitant]
     Dosage: UNK (90 MCG AND 5000 IU)
  6. IBRANCE [Suspect]
     Active Substance: PALBOCICLIB
     Dosage: 75 MG
  7. IBRANCE [Suspect]
     Active Substance: PALBOCICLIB
     Dosage: 125 MG
  8. BIOTIN [Concomitant]
     Active Substance: BIOTIN
     Dosage: UNK, 1X/DAY (IN THE COFFEE EVERY MORNING)
  9. Q10+VIT.E [Concomitant]
     Dosage: 150 IU, UNK
  10. ANASTROZOLE. [Concomitant]
     Active Substance: ANASTROZOLE
     Dosage: 1 MG
  11. VITAMIN D3 [Concomitant]
     Active Substance: CHOLECALCIFEROL
     Dosage: 50 UG, UNK
  12. MELATONIN [Concomitant]
     Active Substance: MELATONIN
     Dosage: 20 MG, 1X/DAY (10MG; 2 PILLS AT NIGHT)
  13. IBRANCE [Suspect]
     Active Substance: PALBOCICLIB
     Dosage: 100 MG
  14. IBRANCE [Suspect]
     Active Substance: PALBOCICLIB
     Dosage: 100 MG, CYCLIC (1 DAILY FOR 21 DAYS ON AND 7 DAYS OFF)
     Route: 048
  15. AMOREX [Concomitant]
     Indication: BREAST CANCER STAGE IV
     Dosage: 1 MG, 1X/DAY
     Route: 048
  16. VITAMIN C [Concomitant]
     Active Substance: ASCORBIC ACID
     Dosage: 500 MG, UNK
  17. EGCG [Concomitant]
     Active Substance: EPIGALLOCATECHIN GALLATE
     Dosage: 800 MG, UNK (400 MG; 2 CAPSULES)
  18. DIM [Concomitant]
     Dosage: UNK (250 MG DIOPERINE 10MG)
  19. VITA K1 [Concomitant]
     Active Substance: PHYTONADIONE
     Dosage: UNK
  20. MILK THISTLE [Concomitant]
     Active Substance: DIETARY SUPPLEMENT\HERBALS\MILK THISTLE
     Dosage: 150 MG, UNK
  21. MAGNESIUM [Concomitant]
     Active Substance: MAGNESIUM
     Dosage: 800 MG, DAILY
  22. CANNABIDIOL [Concomitant]
     Active Substance: CANNABIDIOL
     Dosage: UNK (3 DROPPERFULS A DAY)
  23. COLLAGEN [Concomitant]
     Active Substance: COLLAGEN
     Dosage: UNK, 1X/DAY (IN THE COFFEE EVERY MORNING)
  24. VITAMIN B12 [Concomitant]
     Active Substance: CYANOCOBALAMIN
     Dosage: 1000 UG, UNK

REACTIONS (11)
  - Cellulitis [Unknown]
  - Tumour haemorrhage [Unknown]
  - Psychomotor hyperactivity [Unknown]
  - Product dose omission issue [Unknown]
  - Blood glucose abnormal [Unknown]
  - Weight decreased [Unknown]
  - Blood count abnormal [Recovering/Resolving]
  - Dyspnoea [Unknown]
  - Neoplasm progression [Unknown]
  - Gait disturbance [Unknown]
  - Alopecia [Unknown]

NARRATIVE: CASE EVENT DATE: 2018
